FAERS Safety Report 16046848 (Version 1)
Quarter: 2019Q1

REPORT INFORMATION
  Report Type: Spontaneous
  Country: US (occurrence: US)
  Receive Date: 20190307
  Receipt Date: 20190307
  Transmission Date: 20190418
  Serious: No
  Sender: FDA-Public Use
  Company Number: US-PFIZER INC-2019091813

PATIENT
  Age: 62 Year
  Sex: Female
  Weight: 109.77 kg

DRUGS (1)
  1. TOVIAZ [Suspect]
     Active Substance: FESOTERODINE FUMARATE
     Indication: BLADDER DYSFUNCTION
     Dosage: 8 MG, 1X/DAY
     Route: 048
     Dates: start: 201807, end: 20181203

REACTIONS (5)
  - Somnolence [Recovered/Resolved]
  - Nightmare [Recovered/Resolved]
  - Personality change [Recovered/Resolved]
  - Fatigue [Recovered/Resolved]
  - Memory impairment [Recovered/Resolved]

NARRATIVE: CASE EVENT DATE: 201811
